FAERS Safety Report 19401613 (Version 4)
Quarter: 2021Q3

REPORT INFORMATION
  Report Type: Report from Study
  Country: GB (occurrence: GB)
  Receive Date: 20210611
  Receipt Date: 20210922
  Transmission Date: 20211014
  Serious: Yes (Hospitalization, Other)
  Sender: FDA-Public Use
  Company Number: GB-ADVANZ PHARMA-202106004046

PATIENT

DRUGS (7)
  1. FERACCRU [Suspect]
     Active Substance: FERRIC MALTOL
     Indication: PRODUCT USED FOR UNKNOWN INDICATION
     Dosage: 60 MG, QD, (30 MILLIGRAM, BID)
     Route: 065
  2. USTEKINUMAB [Concomitant]
     Active Substance: USTEKINUMAB
     Dosage: 90 MILLIGRAM, Q8WEEKS
     Route: 050
     Dates: start: 20201217, end: 20201217
  3. VEDOLIZUMAB [Suspect]
     Active Substance: VEDOLIZUMAB
     Indication: COLITIS ULCERATIVE
     Dosage: UNK
     Route: 042
     Dates: start: 20181003
  4. PREDNISOLONE. [Suspect]
     Active Substance: PREDNISOLONE
     Indication: INFLAMMATORY BOWEL DISEASE
     Dosage: 5 MG
     Route: 048
  5. USTEKINUMAB [Concomitant]
     Active Substance: USTEKINUMAB
     Indication: INFLAMMATORY BOWEL DISEASE
     Dosage: 90 MILLIGRAM, Q8WEEKS
     Route: 042
     Dates: start: 20201022, end: 20201022
  6. FERROUS FUMARATE [Concomitant]
     Active Substance: FERROUS FUMARATE
     Indication: ANAEMIA
     Dosage: 420 MG, QD (210 MILLIGRAM, BID)
     Route: 048
     Dates: start: 20200607
  7. FERROUS [Suspect]
     Active Substance: IRON
     Indication: ANAEMIA
     Dosage: UNK UNK, QD
     Dates: start: 202008

REACTIONS (14)
  - Diarrhoea [Recovered/Resolved]
  - Gastrointestinal carcinoma [Recovered/Resolved]
  - Colitis ulcerative [Recovered/Resolved]
  - Micturition urgency [Recovered/Resolved]
  - Frequent bowel movements [Recovered/Resolved]
  - Haematochezia [Recovered/Resolved]
  - Mucous stools [Recovered/Resolved]
  - Nausea [Recovered/Resolved with Sequelae]
  - Fatigue [Recovered/Resolved]
  - Abdominal pain [Recovered/Resolved]
  - Abdominal pain lower [Recovered/Resolved]
  - Night sweats [Recovered/Resolved]
  - Arthralgia [Recovered/Resolved]
  - Pyrexia [Recovered/Resolved]

NARRATIVE: CASE EVENT DATE: 202003
